FAERS Safety Report 5146958-7 (Version None)
Quarter: 2006Q4

REPORT INFORMATION
  Report Type: 
  Country: None (occurrence: None)
  Receive Date: 20061109
  Receipt Date: 20061025
  Transmission Date: 20070319
  Serious: Yes (Hospitalization, Other)
  Sender: FDA-Public Use
  Company Number: 2006AP05178

PATIENT
  Age: 61 Year
  Sex: Male

DRUGS (4)
  1. PULMICORT [Suspect]
     Indication: ASTHMA
     Route: 055
     Dates: start: 20060929
  2. PULMICORT [Suspect]
     Route: 055
     Dates: start: 20061017, end: 20061023
  3. MUCOSOLVAN [Concomitant]
     Indication: ASTHMA
     Route: 048
  4. HUSCODE [Concomitant]
     Indication: ASTHMA
     Route: 048

REACTIONS (5)
  - ALANINE AMINOTRANSFERASE INCREASED [None]
  - ASPARTATE AMINOTRANSFERASE INCREASED [None]
  - HEPATIC FUNCTION ABNORMAL [None]
  - JAUNDICE [None]
  - URTICARIA [None]
